FAERS Safety Report 15574709 (Version 1)
Quarter: 2018Q4

REPORT INFORMATION
  Report Type: Spontaneous
  Country: US (occurrence: US)
  Receive Date: 20181026
  Receipt Date: 20181026
  Transmission Date: 20190205
  Serious: No
  Sender: FDA-Public Use
  Company Number: None

PATIENT
  Age: 64 Year
  Sex: Female
  Weight: 68.04 kg

DRUGS (7)
  1. FORTEO [Suspect]
     Active Substance: TERIPARATIDE
     Indication: GASTROOESOPHAGEAL REFLUX DISEASE
     Dosage: ?          OTHER STRENGTH:600/2.4 UG/ML;?
     Route: 058
     Dates: start: 201805
  2. FORTEO [Suspect]
     Active Substance: TERIPARATIDE
     Indication: OSTEOPOROSIS
  3. FORTEO [Suspect]
     Active Substance: TERIPARATIDE
     Indication: SENILE OSTEOPOROSIS
     Dosage: ?          OTHER STRENGTH:600/2.4 UG/ML;?
     Route: 058
     Dates: start: 201805
  4. FORTEO [Suspect]
     Active Substance: TERIPARATIDE
     Indication: OSTEOPOROSIS
     Dosage: ?          OTHER STRENGTH:600/2.4 UG/ML;?
     Route: 058
     Dates: start: 201805
  5. FORTEO [Suspect]
     Active Substance: TERIPARATIDE
     Indication: RHEUMATOID ARTHRITIS
  6. FORTEO [Suspect]
     Active Substance: TERIPARATIDE
     Indication: RHEUMATOID ARTHRITIS
     Dosage: ?          OTHER STRENGTH:600/2.4 UG/ML;?
     Route: 058
     Dates: start: 201805
  7. FORTEO [Suspect]
     Active Substance: TERIPARATIDE
     Indication: GASTROOESOPHAGEAL REFLUX DISEASE

REACTIONS (3)
  - Asthenia [None]
  - Decreased appetite [None]
  - Gastric disorder [None]
